FAERS Safety Report 17439964 (Version 2)
Quarter: 2020Q1

REPORT INFORMATION
  Report Type: Spontaneous
  Country: TH (occurrence: TH)
  Receive Date: 20200220
  Receipt Date: 20200229
  Transmission Date: 20200409
  Serious: Yes (Other)
  Sender: FDA-Public Use
  Company Number: TH-ROCHE-2550664

PATIENT
  Age: 64 Year
  Sex: Female
  Weight: 38 kg

DRUGS (7)
  1. GEMCITABINE. [Suspect]
     Active Substance: GEMCITABINE
     Indication: DIFFUSE LARGE B-CELL LYMPHOMA
     Dosage: PART OF GEMOX FOR 2 CYCLES
     Route: 065
     Dates: start: 20191115, end: 20191225
  2. RITUXIMAB. [Suspect]
     Active Substance: RITUXIMAB
     Indication: DIFFUSE LARGE B-CELL LYMPHOMA
     Dosage: PART OF RITUXIMAB-MINI CHOP FOR 6 CYCLES
     Route: 065
     Dates: start: 20190401, end: 20190724
  3. CYCLOPHOSPHAMIDE. [Suspect]
     Active Substance: CYCLOPHOSPHAMIDE
     Indication: DIFFUSE LARGE B-CELL LYMPHOMA
     Dosage: PART OF RITUXIMAB-MINI CHOP FOR 6 CYCLES
     Route: 065
     Dates: start: 20190401, end: 20190724
  4. DOXORUBICIN [Suspect]
     Active Substance: DOXORUBICIN
     Indication: DIFFUSE LARGE B-CELL LYMPHOMA
     Dosage: PART OF RITUXIMAB-MINI CHOP FOR 6 CYCLES
     Route: 065
     Dates: start: 20190401, end: 20190724
  5. VINCRISTINE [Suspect]
     Active Substance: VINCRISTINE
     Indication: DIFFUSE LARGE B-CELL LYMPHOMA
     Dosage: PART OF RITUXIMAB-MINI CHOP FOR 6 CYCLES
     Route: 065
     Dates: start: 20190401, end: 20190724
  6. PREDNISOLONE. [Suspect]
     Active Substance: PREDNISOLONE
     Indication: DIFFUSE LARGE B-CELL LYMPHOMA
     Dosage: PART OF RITUXIMAB-MINI CHOP FOR 6 CYCLES
     Route: 065
     Dates: start: 20190401, end: 20190724
  7. OXALIPLATIN. [Suspect]
     Active Substance: OXALIPLATIN
     Indication: DIFFUSE LARGE B-CELL LYMPHOMA
     Dosage: PART OF GEMOX FOR 2 CYCLES
     Route: 065
     Dates: start: 20191115, end: 20191225

REACTIONS (4)
  - Renal mass [Unknown]
  - Tumour lysis syndrome [Unknown]
  - Ascites [Unknown]
  - Therapy partial responder [Unknown]

NARRATIVE: CASE EVENT DATE: 20200129
